FAERS Safety Report 14032709 (Version 5)
Quarter: 2017Q4

REPORT INFORMATION
  Report Type: Spontaneous
  Country: US (occurrence: US)
  Receive Date: 20171002
  Receipt Date: 20171129
  Transmission Date: 20180321
  Serious: No
  Sender: FDA-Public Use
  Company Number: US-PFIZER INC-2017421603

PATIENT
  Age: 70 Year
  Sex: Female
  Weight: 61 kg

DRUGS (2)
  1. ADVIL [Suspect]
     Active Substance: IBUPROFEN
     Indication: MUSCLE STRAIN
     Dosage: 200 MG, 2 LIQUI-GELS THE FIRST TIME, AND 1 LIQUI-GEL EVERY TIME AFTER, BY MOUTH EVERY 4-6 HOURS
     Route: 048
     Dates: start: 20170924, end: 20170926
  2. ADVIL [Suspect]
     Active Substance: IBUPROFEN
     Indication: MUSCULOSKELETAL PAIN
     Dosage: 4 DF, UNK
     Dates: start: 201709

REACTIONS (3)
  - Product physical issue [Recovered/Resolved]
  - Tongue discomfort [Recovered/Resolved]
  - Poor quality drug administered [Recovered/Resolved]

NARRATIVE: CASE EVENT DATE: 201709
